FAERS Safety Report 19732323 (Version 1)
Quarter: 2021Q3

REPORT INFORMATION
  Report Type: Other
  Country: IN (occurrence: IN)
  Receive Date: 20210822
  Receipt Date: 20210822
  Transmission Date: 20211014
  Serious: Yes (Hospitalization, Other)
  Sender: FDA-Public Use
  Company Number: IN-SQUARE-000028

PATIENT
  Age: 65 Year
  Sex: Male

DRUGS (4)
  1. ACICLOVIR [Suspect]
     Active Substance: ACYCLOVIR
     Indication: PRODUCT USED FOR UNKNOWN INDICATION
     Dosage: 5 MG/KG ONCE DAILY
     Route: 042
  2. ISONIAZIDE [Concomitant]
     Active Substance: ISONIAZID
     Indication: PULMONARY TUBERCULOSIS
  3. ACICLOVIR [Suspect]
     Active Substance: ACYCLOVIR
     Indication: IMMUNOSUPPRESSION
     Dosage: 400 MG THRICE DAILY
  4. RIFAMPICIN [Concomitant]
     Active Substance: RIFAMPIN
     Indication: PULMONARY TUBERCULOSIS

REACTIONS (3)
  - Toxic encephalopathy [Recovered/Resolved]
  - Neurotoxicity [Unknown]
  - Toxicity to various agents [Unknown]
